FAERS Safety Report 6762794-X (Version None)
Quarter: 2010Q2

REPORT INFORMATION
  Report Type: 
  Country: None (occurrence: None)
  Receive Date: 20100609
  Receipt Date: 20100601
  Transmission Date: 20101027
  Serious: Yes (Other)
  Sender: FDA-Public Use
  Company Number: B0659552A

PATIENT
  Sex: Male

DRUGS (4)
  1. AVANDIA [Suspect]
  2. NOVONORM [Concomitant]
  3. CRESTOR [Concomitant]
  4. OLMESARTAN MEDOXOMIL [Concomitant]
     Indication: HYPERTENSION

REACTIONS (1)
  - BUNDLE BRANCH BLOCK [None]
